FAERS Safety Report 25317830 (Version 2)
Quarter: 2025Q2

REPORT INFORMATION
  Report Type: Spontaneous
  Country: US (occurrence: US)
  Receive Date: 20250515
  Receipt Date: 20250625
  Transmission Date: 20250716
  Serious: No
  Sender: ALEXION PHARMACEUTICALS
  Company Number: US-AstraZeneca-CH-00867706AP

PATIENT

DRUGS (1)
  1. FASENRA [Suspect]
     Active Substance: BENRALIZUMAB
     Route: 065

REACTIONS (12)
  - Drug dose omission by device [Unknown]
  - Incorrect dose administered [Unknown]
  - Migraine [Unknown]
  - Visual impairment [Unknown]
  - Wrong technique in device usage process [Unknown]
  - Abdominal discomfort [Unknown]
  - Device leakage [Unknown]
  - Anxiety [Unknown]
  - Device delivery system issue [Unknown]
  - Injection site pain [Unknown]
  - Device delivery system issue [Unknown]
  - Medication error [Unknown]
